FAERS Safety Report 6294628-4 (Version None)
Quarter: 2009Q3

REPORT INFORMATION
  Report Type: 
  Country: None (occurrence: None)
  Receive Date: 20090803
  Receipt Date: 20090730
  Transmission Date: 20100115
  Serious: Yes (Death, Hospitalization)
  Sender: FDA-Public Use
  Company Number: JP-BAYER-200912621BYL

PATIENT
  Age: 78 Year
  Sex: Male

DRUGS (2)
  1. NEXAVAR [Suspect]
     Indication: HEPATIC NEOPLASM MALIGNANT
     Dosage: TOTAL DAILY DOSE: 800 MG  UNIT DOSE: 200 MG
     Route: 048
     Dates: start: 20090624, end: 20090701
  2. NEXAVAR [Suspect]
     Dosage: TOTAL DAILY DOSE: 400 MG  UNIT DOSE: 200 MG
     Route: 048
     Dates: start: 20090702

REACTIONS (7)
  - ASTHMA [None]
  - BRONCHITIS [None]
  - HYPERTENSION [None]
  - PALMAR-PLANTAR ERYTHRODYSAESTHESIA SYNDROME [None]
  - PNEUMOTHORAX [None]
  - PYOTHORAX [None]
  - PYREXIA [None]
